FAERS Safety Report 21842926 (Version 1)
Quarter: 2023Q1

REPORT INFORMATION
  Report Type: Spontaneous
  Country: US (occurrence: US)
  Receive Date: 20230110
  Receipt Date: 20230110
  Transmission Date: 20230418
  Serious: No
  Sender: FDA-Public Use
  Company Number: US-OCULAR THERAPEUTIX-2022OCX00043

PATIENT
  Sex: Female

DRUGS (2)
  1. DEXTENZA [Suspect]
     Active Substance: DEXAMETHASONE
     Indication: Conjunctivitis allergic
     Dosage: 0.4 MG, ONCE (BOTH EYES)
     Route: 047
     Dates: start: 20221025
  2. XIIDRA [Concomitant]
     Active Substance: LIFITEGRAST

REACTIONS (5)
  - Eye pruritus [Not Recovered/Not Resolved]
  - Erythema of eyelid [Not Recovered/Not Resolved]
  - Product quality issue [Not Recovered/Not Resolved]
  - Ocular hyperaemia [Not Recovered/Not Resolved]
  - Lacrimation increased [Not Recovered/Not Resolved]

NARRATIVE: CASE EVENT DATE: 20221025
